FAERS Safety Report 17351501 (Version 1)
Quarter: 2020Q1

REPORT INFORMATION
  Report Type: Report from Study
  Country: US (occurrence: US)
  Receive Date: 20200130
  Receipt Date: 20200130
  Transmission Date: 20200409
  Serious: Yes (Other)
  Sender: FDA-Public Use
  Company Number: US-ADAMAS PHARMA, LLC-2020ADA00188

PATIENT
  Age: 79 Year
  Sex: Male

DRUGS (12)
  1. MULTI-VITAMIN [Concomitant]
     Active Substance: .ALPHA.-TOCOPHEROL ACETATE, DL-\ASCORBIC ACID\CYANOCOBALAMIN\FLUORIDE ION\FOLIC ACID\NIACIN\PYRIDOXINE\RIBOFLAVIN\THIAMINE\VITAMIN A\VITAMIN D
  2. UNSPECIFIED PROSTATE MEDICATION [Concomitant]
  3. ATORVASTATIN [Concomitant]
     Active Substance: ATORVASTATIN
  4. RASAGILINE. [Concomitant]
     Active Substance: RASAGILINE
  5. UNSPECIFIED HEART MEDICATION [Concomitant]
     Active Substance: UNSPECIFIED INGREDIENT
  6. AVODART [Concomitant]
     Active Substance: DUTASTERIDE
  7. DIGOXIN. [Concomitant]
     Active Substance: DIGOXIN
  8. TOPROL XL [Concomitant]
     Active Substance: METOPROLOL SUCCINATE
  9. TYLENOL [Concomitant]
     Active Substance: ACETAMINOPHEN
  10. WARFARIN [Concomitant]
     Active Substance: WARFARIN
  11. RYTARY [Concomitant]
     Active Substance: CARBIDOPA\LEVODOPA
  12. GOCOVRI [Suspect]
     Active Substance: AMANTADINE
     Indication: DYSKINESIA
     Dosage: 137 MG, 1X/DAY AT BEDTIME
     Route: 048
     Dates: start: 20200107, end: 202001

REACTIONS (9)
  - Dystonia [Recovered/Resolved]
  - Weight decreased [Not Recovered/Not Resolved]
  - Incontinence [Recovering/Resolving]
  - Tremor [Recovered/Resolved]
  - Unresponsive to stimuli [Recovered/Resolved]
  - Dyskinesia [Not Recovered/Not Resolved]
  - Decreased appetite [Not Recovered/Not Resolved]
  - Loss of personal independence in daily activities [Recovered/Resolved]
  - Hypotonia [Recovered/Resolved]

NARRATIVE: CASE EVENT DATE: 202001
